FAERS Safety Report 10398663 (Version 5)
Quarter: 2015Q1

REPORT INFORMATION
  Report Type: Spontaneous
  Country: DE (occurrence: DE)
  Receive Date: 20140821
  Receipt Date: 20150121
  Transmission Date: 20150720
  Serious: Yes (Hospitalization, Other)
  Sender: FDA-Public Use
  Company Number: DE-AMGEN-DEUSP2014058582

PATIENT

DRUGS (17)
  1. VITAMIN B COMPLEX [Concomitant]
     Active Substance: CYANOCOBALAMIN\DEXPANTHENOL\NIACINAMIDE\PYRIDOXINE HYDROCHLORIDE\RIBOFLAVIN 5^-PHOSPHATE SODIUM\THIAMINE HYDROCHLORIDE\VITAMIN B COMPLEX
     Route: 048
  2. MAGNESIUM [Suspect]
     Active Substance: MAGNESIUM
     Indication: PRODUCT USED FOR UNKNOWN INDICATION
     Dosage: 400 UNK, 1X1
     Route: 048
  3. MAGNESIUM [Suspect]
     Active Substance: MAGNESIUM
     Dosage: 400 UNK, 1X1
     Route: 048
  4. DIAZEPAM. [Concomitant]
     Active Substance: DIAZEPAM
     Indication: DEPRESSION
     Dosage: 5 MG, QD
     Route: 048
  5. XGEVA [Suspect]
     Active Substance: DENOSUMAB
     Indication: METASTASES TO BONE
     Dosage: 120 UNK, Q4WK
     Route: 058
     Dates: start: 20140711
  6. SELEN [Concomitant]
     Active Substance: SELENIUM
     Dosage: 100 MG, 1X1
     Route: 048
  7. VITAMIN B COMPLEX [Concomitant]
     Active Substance: CYANOCOBALAMIN\DEXPANTHENOL\NIACINAMIDE\PYRIDOXINE HYDROCHLORIDE\RIBOFLAVIN 5^-PHOSPHATE SODIUM\THIAMINE HYDROCHLORIDE\VITAMIN B COMPLEX
     Route: 048
  8. ANASTROZOLE. [Concomitant]
     Active Substance: ANASTROZOLE
     Dosage: UNK
  9. EXEMESTAN [Concomitant]
     Active Substance: EXEMESTANE
     Dosage: UNK
  10. DIAZEPAM. [Concomitant]
     Active Substance: DIAZEPAM
     Dosage: 7.5 MG, QD
  11. PANTOZOL [Concomitant]
     Active Substance: PANTOPRAZOLE SODIUM
     Dosage: 40 MG, BID
  12. CALCIUM +D3 [Suspect]
     Active Substance: CALCIUM\CHOLECALCIFEROL
     Indication: OSTEOPOROSIS
     Dosage: 400/100 UNK, QD
     Route: 048
  13. LETROZOLE. [Concomitant]
     Active Substance: LETROZOLE
     Dosage: UNK
  14. GRANISETRON [Concomitant]
     Active Substance: GRANISETRON
     Dosage: 2 MG, AS NECESSARY
  15. MAGNESIUM [Suspect]
     Active Substance: MAGNESIUM
     Dosage: 400 UNK, 1X1
     Route: 048
  16. DIAZEPAM. [Concomitant]
     Active Substance: DIAZEPAM
     Dosage: 7.5 MG, QD
     Route: 048
  17. SELEN [Concomitant]
     Active Substance: SELENIUM
     Dosage: 100 MG, 1X1
     Route: 048

REACTIONS (18)
  - Abdominal pain upper [Unknown]
  - Panic reaction [Unknown]
  - Cholecystectomy [Recovering/Resolving]
  - Hiatus hernia [Recovering/Resolving]
  - Gastric haemorrhage [Recovering/Resolving]
  - Abdominal pain lower [Not Recovered/Not Resolved]
  - Oral candidiasis [Recovering/Resolving]
  - Coeliac disease [Recovering/Resolving]
  - Constipation [Recovering/Resolving]
  - Metastases to adrenals [Recovering/Resolving]
  - Hypersensitivity [Recovering/Resolving]
  - Anxiety [Unknown]
  - Urinary tract infection [Unknown]
  - Nausea [Unknown]
  - Mitral valve incompetence [Recovering/Resolving]
  - Gastritis erosive [Recovering/Resolving]
  - Drug intolerance [Unknown]
  - Aortic valve incompetence [Recovering/Resolving]

NARRATIVE: CASE EVENT DATE: 201407
